FAERS Safety Report 7495038-4 (Version None)
Quarter: 2011Q2

REPORT INFORMATION
  Report Type: 
  Country: None (occurrence: None)
  Receive Date: 20110520
  Receipt Date: 20110511
  Transmission Date: 20111010
  Serious: No
  Sender: FDA-Public Use
  Company Number: US-B.I. PHARMACEUTICALS,INC./RIDGEFIELD-2011-BP-12884BP

PATIENT

DRUGS (2)
  1. ATROVENT HFA [Suspect]
  2. SPIRIVA [Suspect]

REACTIONS (1)
  - ADVERSE REACTION [None]
